FAERS Safety Report 7750955-2 (Version None)
Quarter: 2011Q3

REPORT INFORMATION
  Report Type: 
  Country: None (occurrence: None)
  Receive Date: 20110914
  Receipt Date: 20110906
  Transmission Date: 20111222
  Serious: Yes (Hospitalization, Other)
  Sender: FDA-Public Use
  Company Number: US-ELI_LILLY_AND_COMPANY-US201002003753

PATIENT
  Sex: Male
  Weight: 111.11 kg

DRUGS (13)
  1. PRILOSEC [Concomitant]
     Indication: DYSPEPSIA
  2. METFORMIN HCL [Concomitant]
     Dosage: 1000 MG, BID
     Route: 048
  3. TRICOR [Concomitant]
     Dosage: 145 MG, QD
  4. ACTOS [Concomitant]
     Dosage: 30 MG, QD
  5. FISH OIL [Concomitant]
     Dosage: 1000 MG, BID
  6. BYETTA [Suspect]
     Dosage: 10 UG, BID
     Route: 065
     Dates: start: 20060401, end: 20070809
  7. RELAFEN [Concomitant]
     Dosage: 750 MG, BID
     Route: 048
  8. ORAL ANTIDIABETICS [Concomitant]
  9. LISINOPRIL [Concomitant]
     Dosage: 20 MG, QD
  10. ACTOS [Concomitant]
     Dosage: 45 MG, QD
  11. MULTI-VITAMIN [Concomitant]
  12. LIPITOR [Concomitant]
     Dosage: 20 MG, EACH EVENING
     Route: 048
  13. NEXIUM [Concomitant]
     Dosage: 40 MG, QD

REACTIONS (6)
  - PANCREATITIS CHRONIC [None]
  - PANCREATITIS ACUTE [None]
  - DIABETIC GASTROPARESIS [None]
  - TYPE 1 DIABETES MELLITUS [None]
  - AUTONOMIC NEUROPATHY [None]
  - WEIGHT DECREASED [None]
